FAERS Safety Report 6235384-5 (Version None)
Quarter: 2009Q2

REPORT INFORMATION
  Report Type: 
  Country: None (occurrence: None)
  Receive Date: 20090618
  Receipt Date: 20080903
  Transmission Date: 20091009
  Serious: No
  Sender: FDA-Public Use
  Company Number: US-ASTRAZENECA-2008UW18178

PATIENT
  Sex: Male

DRUGS (3)
  1. ENTOCORT EC [Suspect]
     Indication: COELIAC DISEASE
     Dosage: REDUCED DOSE TO 3 MG DAILY
     Route: 048
     Dates: start: 20040101
  2. FORTEO [Concomitant]
  3. ANDOGEL [Concomitant]

REACTIONS (1)
  - ABDOMINAL DISTENSION [None]
